FAERS Safety Report 23483311 (Version 1)
Quarter: 2024Q1

REPORT INFORMATION
  Report Type: Spontaneous
  Country: US (occurrence: None)
  Receive Date: 20240205
  Receipt Date: 20240205
  Transmission Date: 20240410
  Serious: No
  Sender: FDA-Public Use
  Company Number: None

PATIENT
  Sex: Female

DRUGS (9)
  1. TERIPARATIDE [Suspect]
     Active Substance: TERIPARATIDE
     Indication: Bone density abnormal
     Dosage: STRENGTH: 250MCG/ML ?FREQUENCY : DAILY;?
     Route: 058
     Dates: start: 202312
  2. ELIQUIS [Concomitant]
  3. DIAZEPAM [Concomitant]
  4. BETHANCEHOL [Concomitant]
  5. ADDERALL [Concomitant]
  6. ABILIFY [Concomitant]
  7. BACLOFEN [Concomitant]
  8. CYCLOBENZAPRINE [Concomitant]
  9. LASIX [Concomitant]

REACTIONS (4)
  - Spinal operation [None]
  - Oedema peripheral [None]
  - Fluid retention [None]
  - Pulmonary thrombosis [None]
